FAERS Safety Report 4363417-X (Version None)
Quarter: 2004Q2

REPORT INFORMATION
  Report Type: 
  Country: None (occurrence: None)
  Receive Date: 20040517
  Receipt Date: 20040309
  Transmission Date: 20050107
  Serious: No
  Sender: FDA-Public Use
  Company Number: S04-USA-01576-01

PATIENT
  Age: 84 Year
  Sex: Male

DRUGS (8)
  1. NAMENDA [Suspect]
     Indication: DEMENTIA
     Dosage: 5 MG QD PO
     Route: 048
     Dates: start: 20040305, end: 20040309
  2. REMINYL [Concomitant]
  3. TENORMIN [Concomitant]
  4. XANAX [Concomitant]
  5. PLAVIX [Concomitant]
  6. ALTACE [Concomitant]
  7. OXYBUTYNIN [Concomitant]
  8. CHOLESTYRAMINE [Concomitant]

REACTIONS (1)
  - AGITATION [None]
